FAERS Safety Report 25300778 (Version 3)
Quarter: 2025Q3

REPORT INFORMATION
  Report Type: Spontaneous
  Country: CA (occurrence: CA)
  Receive Date: 20250512
  Receipt Date: 20250708
  Transmission Date: 20251020
  Serious: Yes (Hospitalization, Other)
  Sender: PFIZER
  Company Number: CA-PFIZER INC-202500098026

PATIENT
  Age: 62 Year
  Sex: Male

DRUGS (4)
  1. RUXIENCE [Suspect]
     Active Substance: RITUXIMAB-PVVR
     Indication: Rheumatoid arthritis
     Route: 042
     Dates: start: 20240326
  2. RUXIENCE [Suspect]
     Active Substance: RITUXIMAB-PVVR
     Route: 042
     Dates: start: 20240409
  3. PREDNISONE [Concomitant]
     Active Substance: PREDNISONE
     Dates: end: 202504
  4. METHOTREXATE [Concomitant]
     Active Substance: METHOTREXATE

REACTIONS (3)
  - Organising pneumonia [Unknown]
  - Throat tightness [Unknown]
  - Hypoaesthesia oral [Unknown]

NARRATIVE: CASE EVENT DATE: 20240801
